FAERS Safety Report 12544847 (Version 1)
Quarter: 2016Q3

REPORT INFORMATION
  Report Type: Spontaneous
  Country: FR (occurrence: FR)
  Receive Date: 20160711
  Receipt Date: 20160711
  Transmission Date: 20161109
  Serious: Yes (Life-Threatening, Hospitalization, Other)
  Sender: FDA-Public Use
  Company Number: FR-PFIZER INC-2016329978

PATIENT
  Age: 69 Year
  Sex: Male

DRUGS (7)
  1. GLICLAZIDE [Concomitant]
     Active Substance: GLICLAZIDE
     Dosage: 160 MG, DAILY
     Dates: end: 20160602
  2. PRIMPERAN [Concomitant]
     Active Substance: METOCLOPRAMIDE HYDROCHLORIDE
     Dosage: 10 MG, 3X/DAY
     Dates: start: 20160526
  3. TAHOR [Suspect]
     Active Substance: ATORVASTATIN CALCIUM
     Indication: HYPERCHOLESTEROLAEMIA
     Dosage: 40 MG, DAILY
     Route: 048
     Dates: end: 20160602
  4. ERYTHROMYCINE /00020901/ [Concomitant]
     Active Substance: ERYTHROMYCIN
     Dosage: 250 MG, 4X/DAY
     Dates: start: 20160526
  5. JANUVIA [Concomitant]
     Active Substance: SITAGLIPTIN PHOSPHATE
     Dosage: 100 MG, DAILY
     Dates: end: 20160602
  6. KARDEGIC [Concomitant]
     Active Substance: ASPIRIN LYSINE
     Dosage: 75 MG, DAILY
     Dates: end: 20160602
  7. BIPRETERAX /06377001/ [Concomitant]
     Active Substance: INDAPAMIDE\PERINDOPRIL
     Dosage: 1 DF, DAILY
     Dates: end: 20160602

REACTIONS (6)
  - Pulmonary congestion [Unknown]
  - Rhabdomyolysis [Recovered/Resolved]
  - Pleural effusion [Unknown]
  - Septic shock [Unknown]
  - Hepatic encephalopathy [Unknown]
  - Blood creatine phosphokinase increased [Unknown]

NARRATIVE: CASE EVENT DATE: 20160506
